FAERS Safety Report 26217053 (Version 1)
Quarter: 2025Q4

REPORT INFORMATION
  Report Type: Spontaneous
  Country: JP (occurrence: JP)
  Receive Date: 20251231
  Receipt Date: 20251231
  Transmission Date: 20260118
  Serious: Yes (Life-Threatening, Hospitalization)
  Sender: MACLEODS
  Company Number: JP-MLMSERVICE-20251212-PI747288-00323-1

PATIENT

DRUGS (3)
  1. TRIAMCINOLONE ACETONIDE [Suspect]
     Active Substance: TRIAMCINOLONE ACETONIDE
     Indication: Seborrhoeic dermatitis
     Route: 061
  2. DIFLUCORTOLONE VALERATE [Suspect]
     Active Substance: DIFLUCORTOLONE VALERATE
     Indication: Seborrhoeic dermatitis
     Route: 061
  3. DIFLUPREDNATE [Suspect]
     Active Substance: DIFLUPREDNATE
     Indication: Seborrhoeic dermatitis
     Route: 061

REACTIONS (3)
  - Adrenal insufficiency [Recovering/Resolving]
  - Hypothalamic pituitary adrenal axis suppression [Recovering/Resolving]
  - Topical steroid withdrawal reaction [Recovering/Resolving]
